FAERS Safety Report 11252892 (Version 1)
Quarter: 2015Q3

REPORT INFORMATION
  Report Type: Spontaneous
  Country: US (occurrence: None)
  Receive Date: 20150707
  Receipt Date: 20150707
  Transmission Date: 20151125
  Serious: Yes (Other)
  Sender: FDA-Public Use
  Company Number: US-H14001-15-01003

PATIENT
  Age: 67 Year
  Sex: Female

DRUGS (8)
  1. POTASIUM CHLORIDE [Concomitant]
  2. OXALIPLATIN (OXALIPLATIN) (UNKNOWN) (OXALIPLATIN) [Suspect]
     Active Substance: OXALIPLATIN
     Indication: PANCREATIC CARCINOMA METASTATIC
     Dosage: 85 MG/M2, CYCLE 1
     Route: 041
     Dates: start: 201311, end: 2013
  3. DEXAMETHASONE. [Concomitant]
     Active Substance: DEXAMETHASONE
  4. ATROPINE. [Concomitant]
     Active Substance: ATROPINE
  5. LEUCOVORIN (FOLINIC ACID) (UNKNOWN) (FOLINIC ACID) [Concomitant]
  6. 5-FLUOROURACIL (FLUOROURACIL) (UNKNOWN) (FLOUROURACIL) [Concomitant]
  7. IRINOTECAN (IRINOTECAN) (UNKNOWN) (IRINOTECAN) [Suspect]
     Active Substance: IRINOTECAN
     Indication: PANCREATIC CARCINOMA METASTATIC
     Dosage: 180 MG/M2, CYCLE 1
     Route: 041
     Dates: start: 201311, end: 2013
  8. ONDANSETRON [Concomitant]
     Active Substance: ONDANSETRON

REACTIONS (3)
  - Asthenia [None]
  - Aphasia [None]
  - Paralysis [None]
